FAERS Safety Report 5050368-0 (Version None)
Quarter: 2006Q3

REPORT INFORMATION
  Report Type: 
  Country: None (occurrence: None)
  Receive Date: 20060707
  Receipt Date: 20060621
  Transmission Date: 20061208
  Serious: Yes (Hospitalization, Other)
  Sender: FDA-Public Use
  Company Number: DSA_28381_2006

PATIENT
  Age: 79 Year
  Sex: Female
  Weight: 60 kg

DRUGS (11)
  1. RENIVACE [Suspect]
     Indication: HYPERTENSION
     Dosage: 5 MG QAM PO
     Route: 048
     Dates: start: 19980901, end: 20050618
  2. UNIPHYL [Concomitant]
  3. LORAZEPAM [Concomitant]
  4. SEPAMIT-R [Concomitant]
  5. ONION/PRANKULAST HYDRATE [Concomitant]
  6. GASTER D [Concomitant]
  7. LASIX [Concomitant]
  8. ZYRTEC [Concomitant]
  9. FLUTIDE [Concomitant]
  10. HOKUNALIN [Concomitant]
  11. CRAVIT [Concomitant]

REACTIONS (8)
  - ANGIONEUROTIC OEDEMA [None]
  - DEPRESSED LEVEL OF CONSCIOUSNESS [None]
  - DYSARTHRIA [None]
  - LABORATORY TEST ABNORMAL [None]
  - OROPHARYNGEAL SWELLING [None]
  - PHARYNGEAL STENOSIS [None]
  - PHARYNGOLARYNGEAL PAIN [None]
  - RESPIRATORY ARREST [None]
